FAERS Safety Report 15544003 (Version 5)
Quarter: 2019Q2

REPORT INFORMATION
  Report Type: Spontaneous
  Country: US (occurrence: US)
  Receive Date: 20181023
  Receipt Date: 20190402
  Transmission Date: 20190711
  Serious: No
  Sender: FDA-Public Use
  Company Number: US-LUNDBECK-DKLU2055931

PATIENT
  Sex: Male

DRUGS (2)
  1. ZONISAMIDE. [Concomitant]
     Active Substance: ZONISAMIDE
     Indication: SEIZURE
     Route: 048
  2. ONFI [Suspect]
     Active Substance: CLOBAZAM
     Indication: SEIZURE
     Route: 048

REACTIONS (3)
  - Lethargy [Unknown]
  - Product colour issue [Unknown]
  - Abnormal behaviour [Unknown]
